FAERS Safety Report 4556569-X (Version None)
Quarter: 2005Q1

REPORT INFORMATION
  Report Type: 
  Country: None (occurrence: None)
  Receive Date: 20050118
  Receipt Date: 20050104
  Transmission Date: 20050727
  Serious: Yes (Other)
  Sender: FDA-Public Use
  Company Number: 2005004219

PATIENT
  Sex: Female
  Weight: 56.6996 kg

DRUGS (26)
  1. NEURONTIN [Suspect]
     Indication: FIBROMYALGIA
     Dosage: SEE IMAGE
     Route: 048
  2. NEURONTIN [Suspect]
     Indication: INSOMNIA
     Dosage: SEE IMAGE
     Route: 048
  3. NEURONTIN [Suspect]
     Indication: RESTLESS LEGS SYNDROME
     Dosage: SEE IMAGE
     Route: 048
  4. GABAPENTIN [Suspect]
     Indication: FIBROMYALGIA
     Dosage: UNKNOWN
     Route: 065
     Dates: start: 20040101
  5. GABAPENTIN [Suspect]
     Indication: INSOMNIA
     Dosage: UNKNOWN
     Route: 065
     Dates: start: 20040101
  6. GABAPENTIN [Suspect]
     Indication: RESTLESS LEGS SYNDROME
     Dosage: UNKNOWN
     Route: 065
     Dates: start: 20040101
  7. LEVOTHYROXINE SODIUM [Concomitant]
  8. LOSARTAN POTASSIUM [Concomitant]
  9. FAMOTIDINE [Concomitant]
  10. VERAPAMIL [Concomitant]
  11. TRAZODONE (TRAZODONE) [Concomitant]
  12. TIZANIDINE (TIZANIDINE) [Concomitant]
  13. CEVIMELINE HYDROCHLORIDE (CEVIMELINE HYDROCHLORIDE) [Concomitant]
  14. ALL OTHER THERAPEUTIC PRODUCTS (ALL OTHER THERAPEUTIC PRODUCTS) [Concomitant]
  15. ERYTHROMYCIN [Concomitant]
  16. CONJUGATED ESTROGENS [Concomitant]
  17. MULTIVITAMINS WITH MINERALS (MULTIVITAMINS WITH MINERALS) [Concomitant]
  18. B-KOMPLEX ^LECIVA^ (CALCIUM PANTOTHENATE, NICOTINAMIDE, PYRIDOXINE HYD [Concomitant]
  19. FISH OIL (FISH OIL) [Concomitant]
  20. MAGNESIUM (MAGNESIUM) [Concomitant]
  21. GLUCOSAMINE (GLUCOSAMINE) [Concomitant]
  22. CALCIUM (CALCIUM) [Concomitant]
  23. ASPIRIN [Concomitant]
  24. ACETAMINOPHEN [Concomitant]
  25. TEARS NATURALE (DEXTRAN 70, HYPROMELLOSE) [Concomitant]
  26. CARMELLOSE SODIUM (CARMELLOSE SODIUM) [Concomitant]

REACTIONS (7)
  - BODY HEIGHT DECREASED [None]
  - DRUG INEFFECTIVE [None]
  - NERVE INJURY [None]
  - PAIN [None]
  - PAIN IN EXTREMITY [None]
  - PHARMACEUTICAL PRODUCT COMPLAINT [None]
  - PRURITUS [None]
